FAERS Safety Report 12624991 (Version 2)
Quarter: 2016Q3

REPORT INFORMATION
  Report Type: Spontaneous
  Country: JP (occurrence: JP)
  Receive Date: 20160805
  Receipt Date: 20160815
  Transmission Date: 20161109
  Serious: Yes (Life-Threatening, Hospitalization)
  Sender: FDA-Public Use
  Company Number: JP-ORION CORPORATION ORION PHARMA-ENTC2016-0202

PATIENT
  Age: 71 Year
  Sex: Male

DRUGS (13)
  1. CYMBALTA [Concomitant]
     Active Substance: DULOXETINE HYDROCHLORIDE
     Route: 065
     Dates: start: 20160506
  2. STALEVO [Suspect]
     Active Substance: CARBIDOPA\ENTACAPONE\LEVODOPA
     Dosage: STRENGTH: 50/5/100 MG
     Route: 048
     Dates: start: 20160329, end: 20160411
  3. MENESIT [Concomitant]
     Active Substance: CARBIDOPA\LEVODOPA
     Route: 065
     Dates: start: 20151230, end: 20160411
  4. PARLODEL [Concomitant]
     Active Substance: BROMOCRIPTINE MESYLATE
     Dosage: STRENGTH: 5 MG
     Route: 065
     Dates: start: 20151230, end: 20160329
  5. PARLODEL [Concomitant]
     Active Substance: BROMOCRIPTINE MESYLATE
     Route: 065
     Dates: start: 20160329, end: 20160506
  6. STALEVO [Suspect]
     Active Substance: CARBIDOPA\ENTACAPONE\LEVODOPA
     Route: 048
     Dates: end: 20160506
  7. SYMMETREL [Suspect]
     Active Substance: AMANTADINE HYDROCHLORIDE
     Indication: PARKINSON^S DISEASE
     Route: 048
  8. MENESIT [Concomitant]
     Active Substance: CARBIDOPA\LEVODOPA
     Route: 065
     Dates: start: 20160506
  9. REQUIP [Concomitant]
     Active Substance: ROPINIROLE HYDROCHLORIDE
     Dosage: STRENGTH: 2 MG
     Route: 065
     Dates: start: 20160329
  10. BI SIFROL [Concomitant]
     Active Substance: PRAMIPEXOLE
     Dosage: STRENGTH: 0.5 MG
     Route: 065
     Dates: start: 20160411
  11. MENESIT [Concomitant]
     Active Substance: CARBIDOPA\LEVODOPA
     Route: 065
     Dates: start: 20160411
  12. STALEVO [Suspect]
     Active Substance: CARBIDOPA\ENTACAPONE\LEVODOPA
     Indication: PARKINSONISM
     Dosage: STRENGTH: 100/10/100 MG
     Route: 048
     Dates: start: 20151230, end: 20160329
  13. NEUPRO [Concomitant]
     Active Substance: ROTIGOTINE
     Route: 065
     Dates: start: 20160411

REACTIONS (5)
  - Drug effect decreased [Unknown]
  - Bradykinesia [Not Recovered/Not Resolved]
  - Hypotonia [Unknown]
  - Dysstasia [Unknown]
  - Akinesia [Not Recovered/Not Resolved]

NARRATIVE: CASE EVENT DATE: 20160129
